FAERS Safety Report 18554140 (Version 1)
Quarter: 2020Q4

REPORT INFORMATION
  Report Type: Report from Study
  Country: FR (occurrence: FR)
  Receive Date: 20201127
  Receipt Date: 20201127
  Transmission Date: 20210114
  Serious: Yes (Other)
  Sender: FDA-Public Use
  Company Number: FR-ROCHE-2717223

PATIENT
  Age: 61 Year
  Sex: Female

DRUGS (5)
  1. ATEZOLIZUMAB. [Suspect]
     Active Substance: ATEZOLIZUMAB
     Indication: OVARIAN CANCER
     Dosage: PATIENT RECEIVED LAST DOSE OF ATEZOLIZUMAB BEFORE THE EVENT: 10/JAN/2018
     Route: 042
     Dates: start: 20170917
  2. BEVACIZUMAB. [Suspect]
     Active Substance: BEVACIZUMAB
     Indication: OVARIAN CANCER
     Dosage: ON 10/01/2018, PATIENT RECEIVED LAST DOSE OF BEVACIZUMAB BEFORE THE EVENT
     Route: 042
     Dates: start: 20170917
  3. CAELYX [Suspect]
     Active Substance: DOXORUBICIN HYDROCHLORIDE
     Indication: OVARIAN CANCER
     Dosage: ON 10/01/2018, PATIENT RECEIVED LAST DOSE OF CHEMOTHERAPY BEFORE THE EVENT
     Route: 042
     Dates: start: 20170917
  4. PIPERAZINE [Concomitant]
     Active Substance: PIPERAZINE
  5. CARBOPLATIN. [Suspect]
     Active Substance: CARBOPLATIN
     Indication: OVARIAN CANCER
     Dosage: ON 10/01/2018, PATIENT RECEIVED LAST DOSE OF CHEMOTHERAPY BEFORE THE EVENT
     Route: 042
     Dates: start: 20170917

REACTIONS (1)
  - Dermatitis bullous [Recovered/Resolved]

NARRATIVE: CASE EVENT DATE: 20180124
